FAERS Safety Report 5642904-8 (Version None)
Quarter: 2008Q1

REPORT INFORMATION
  Report Type: 
  Country: None (occurrence: None)
  Receive Date: 20080227
  Receipt Date: 20080227
  Transmission Date: 20080703
  Serious: Yes (Life-Threatening, Hospitalization)
  Sender: FDA-Public Use
  Company Number: None

PATIENT
  Age: 43 Year
  Sex: Female
  Weight: 53.978 kg

DRUGS (1)
  1. ARAVA [Suspect]
     Indication: JUVENILE ARTHRITIS
     Dosage: DAILY   (DURATION: LESS THAN A YEAR)
     Dates: start: 20010601, end: 20020101

REACTIONS (12)
  - ANAEMIA [None]
  - BLOOD PRESSURE IMMEASURABLE [None]
  - CARDIAC DISORDER [None]
  - FATIGUE [None]
  - HEPATOCELLULAR INJURY [None]
  - ILL-DEFINED DISORDER [None]
  - IMPAIRED WORK ABILITY [None]
  - MENTAL DISORDER [None]
  - NIGHTMARE [None]
  - PAIN [None]
  - PULSE ABSENT [None]
  - RENAL DISORDER [None]
